FAERS Safety Report 4408503-0 (Version None)
Quarter: 2004Q3

REPORT INFORMATION
  Report Type: 
  Country: None (occurrence: None)
  Receive Date: 20040726
  Receipt Date: 20040726
  Transmission Date: 20050211
  Serious: Yes (Death, Life-Threatening, Hospitalization, Other)
  Sender: FDA-Public Use
  Company Number: None

PATIENT
  Age: 61 Year
  Sex: Female
  Weight: 54.4316 kg

DRUGS (4)
  1. ACETAMINOPHEN [Suspect]
     Indication: FACIAL PAIN
     Dosage: Q 2-3 HR PRN PO
     Route: 048
  2. ACETAMINOPHEN [Suspect]
     Indication: TOOTH DISORDER
     Dosage: Q 2-3 HR PRN PO
     Route: 048
  3. AMOXICILLIN [Concomitant]
  4. TYLENOL W/ CODEINE NO. 3 [Concomitant]

REACTIONS (8)
  - ACCIDENTAL EXPOSURE [None]
  - AMMONIA INCREASED [None]
  - COAGULOPATHY [None]
  - DEHYDRATION [None]
  - DRUG LEVEL ABOVE THERAPEUTIC [None]
  - DRUG TOXICITY [None]
  - HEPATIC FAILURE [None]
  - MARKEDLY REDUCED DIETARY INTAKE [None]
